FAERS Safety Report 10029013 (Version 3)
Quarter: 2014Q2

REPORT INFORMATION
  Report Type: Report from Study
  Country: US (occurrence: US)
  Receive Date: 20140321
  Receipt Date: 20140415
  Transmission Date: 20141212
  Serious: Yes (Other)
  Sender: FDA-Public Use
  Company Number: PHHY2013US008274

PATIENT
  Sex: Male

DRUGS (3)
  1. LUCENTIS [Suspect]
     Indication: EYE ABSCESS
     Dosage: UNK UKN, QMO
     Route: 031
     Dates: start: 2013
  2. RIBAVIRIN [Suspect]
     Indication: HEPATITIS C
     Dosage: 600 MG, UNK
     Route: 048
  3. INTERFERON ALFA-2A [Suspect]
     Indication: HEPATITIS C
     Dosage: 80 MG, UNK
     Route: 058

REACTIONS (8)
  - Blood glucose decreased [Recovering/Resolving]
  - Nerve compression [Recovering/Resolving]
  - Loss of consciousness [Unknown]
  - Faeces discoloured [Unknown]
  - Neuropathy peripheral [Unknown]
  - Abdominal pain [Unknown]
  - Vomiting [Unknown]
  - Drug effect decreased [Unknown]
